FAERS Safety Report 12809922 (Version 2)
Quarter: 2016Q4

REPORT INFORMATION
  Report Type: Spontaneous
  Country: US (occurrence: US)
  Receive Date: 20161005
  Receipt Date: 20161012
  Transmission Date: 20170207
  Serious: Yes (Hospitalization, Other)
  Sender: FDA-Public Use
  Company Number: US-ALEXION PHARMACEUTICALS INC.-A201607427

PATIENT
  Sex: Female

DRUGS (1)
  1. SOLIRIS [Suspect]
     Active Substance: ECULIZUMAB
     Indication: HAEMOLYTIC URAEMIC SYNDROME
     Dosage: 300 MG, UNK
     Route: 042
     Dates: start: 20150210

REACTIONS (5)
  - Haemolytic uraemic syndrome [Unknown]
  - Viral infection [Unknown]
  - Blood lactate dehydrogenase increased [Unknown]
  - Laboratory test abnormal [Unknown]
  - Haemoglobin decreased [Unknown]
